FAERS Safety Report 9557708 (Version 1)
Quarter: 2013Q3

REPORT INFORMATION
  Report Type: Spontaneous
  Country: US (occurrence: None)
  Receive Date: 20130724
  Receipt Date: 20130724
  Transmission Date: 20140515
  Serious: Yes (Other)
  Sender: FDA-Public Use
  Company Number: PHEH2012US016075

PATIENT
  Age: 54 Year
  Sex: Female

DRUGS (3)
  1. GLEEVEC (IMATINIB) UNKNOWN [Suspect]
     Route: 048
     Dates: start: 20120323
  2. AMLODIPINE (AMLODIPINE) [Concomitant]
  3. NORTRIPTYLINE (NORTRIPTYLINE) [Concomitant]

REACTIONS (2)
  - Urinary tract infection [None]
  - Back pain [None]
